FAERS Safety Report 12115019 (Version 1)
Quarter: 2016Q1

REPORT INFORMATION
  Report Type: Report from Study
  Country: FR (occurrence: FR)
  Receive Date: 20160225
  Receipt Date: 20160225
  Transmission Date: 20160526
  Serious: Yes (Other)
  Sender: FDA-Public Use
  Company Number: FR-SANOFI-AVENTIS-200913004EU

PATIENT
  Sex: Female
  Weight: 102 kg

DRUGS (8)
  1. TERIFLUNOMIDE [Suspect]
     Active Substance: TERIFLUNOMIDE
     Indication: MULTIPLE SCLEROSIS RELAPSE
     Route: 048
     Dates: start: 20081217, end: 20090109
  2. CYNOMEL [Concomitant]
     Route: 048
     Dates: start: 1998
  3. TOCO [Concomitant]
     Active Substance: UNSPECIFIED INGREDIENT
     Route: 048
     Dates: start: 2001
  4. CYMBALTA [Concomitant]
     Active Substance: DULOXETINE HYDROCHLORIDE
  5. LEVOTHYROX [Concomitant]
     Active Substance: LEVOTHYROXINE
     Route: 048
     Dates: start: 1998
  6. LYRICA [Concomitant]
     Active Substance: PREGABALIN
     Dosage: DOSE AS USED: UNK
     Dates: start: 20081217
  7. ESOMEPRAZOLE [Concomitant]
     Active Substance: ESOMEPRAZOLE
     Dosage: DOSE AS USED: UNK
  8. EZETROL [Concomitant]
     Active Substance: EZETIMIBE
     Dosage: DOSE AS USED: UNK
     Route: 048
     Dates: start: 20070918

REACTIONS (1)
  - Respiratory failure [Recovered/Resolved]
